FAERS Safety Report 26111189 (Version 2)
Quarter: 2025Q4

REPORT INFORMATION
  Report Type: Spontaneous
  Country: US (occurrence: US)
  Receive Date: 20251202
  Receipt Date: 20251222
  Transmission Date: 20260117
  Serious: Yes (Other)
  Sender: DR REDDYS
  Company Number: US-DRL-USA-USA/2025/11/017846

PATIENT
  Age: 88 Year
  Sex: Female
  Weight: 66.22 kg

DRUGS (3)
  1. FLUOROURACIL [Suspect]
     Active Substance: FLUOROURACIL
     Indication: Skin cancer
     Dosage: PUT ON THE SURFACE OF THE ARM IN MORNING AND AT NIGHT
     Route: 061
     Dates: start: 20251101, end: 20251115
  2. LEVETIRACETAM [Suspect]
     Active Substance: LEVETIRACETAM
     Indication: Seizure
     Dosage: 1 DURING MORNING AND 1 BEFORE GOING TO BED AT NIGHT
     Route: 065
  3. ATENOLOL [Concomitant]
     Active Substance: ATENOLOL
     Indication: Blood pressure abnormal
     Route: 065

REACTIONS (3)
  - Hallucination [Recovered/Resolved]
  - Malaise [Not Recovered/Not Resolved]
  - Headache [Recovered/Resolved]
